FAERS Safety Report 23514128 (Version 1)
Quarter: 2024Q1

REPORT INFORMATION
  Report Type: Spontaneous
  Country: US (occurrence: None)
  Receive Date: 20240211
  Receipt Date: 20240211
  Transmission Date: 20240410
  Serious: Yes (Hospitalization)
  Sender: FDA-Public Use
  Company Number: None

PATIENT
  Age: 43 Year
  Sex: Female
  Weight: 44.37 kg

DRUGS (3)
  1. METRONIDAZOLE [Suspect]
     Active Substance: METRONIDAZOLE
     Indication: Bacterial vaginosis
     Dosage: OTHER QUANTITY : 13 TABLET(S);?FREQUENCY : TWICE A DAY;?
     Route: 048
  2. Flagyl/metronidazole 500 mg [Concomitant]
  3. VITAMIN D [Concomitant]
     Active Substance: VITAMIN D NOS

REACTIONS (15)
  - Confusional state [None]
  - Thinking abnormal [None]
  - Speech disorder [None]
  - Brain fog [None]
  - Visual impairment [None]
  - Myalgia [None]
  - Asthenia [None]
  - Palpitations [None]
  - Chest pain [None]
  - Anxiety [None]
  - Panic attack [None]
  - Dizziness [None]
  - Syncope [None]
  - Fatigue [None]
  - Loss of personal independence in daily activities [None]
